FAERS Safety Report 20350779 (Version 1)
Quarter: 2022Q1

REPORT INFORMATION
  Report Type: Spontaneous
  Country: US (occurrence: None)
  Receive Date: 20220117
  Receipt Date: 20220117
  Transmission Date: 20220423
  Serious: Yes (Death, Hospitalization, Other)
  Sender: FDA-Public Use
  Company Number: None

PATIENT
  Age: 43 Year
  Sex: Male
  Weight: 85.8 kg

DRUGS (2)
  1. DROPERIDOL [Suspect]
     Active Substance: DROPERIDOL
     Indication: Nausea
     Dosage: OTHER FREQUENCY : ONCCE;?
     Route: 040
     Dates: start: 20211221, end: 20211221
  2. DROPERIDOL [Suspect]
     Active Substance: DROPERIDOL
     Indication: Vomiting

REACTIONS (3)
  - Cyanosis [None]
  - Cardio-respiratory arrest [None]
  - Blood potassium decreased [None]

NARRATIVE: CASE EVENT DATE: 20211221
